FAERS Safety Report 9949727 (Version 1)
Quarter: 2014Q1

REPORT INFORMATION
  Report Type: Report from Study
  Country: US (occurrence: US)
  Receive Date: 20140304
  Receipt Date: 20140304
  Transmission Date: 20141002
  Serious: No
  Sender: FDA-Public Use
  Company Number: US-ABBVIE-13P-163-1070294-00

PATIENT
  Age: 45 Year
  Sex: Female

DRUGS (10)
  1. HUMIRA [Suspect]
     Indication: CROHN^S DISEASE
     Dates: start: 2011
  2. FENTANYL [Concomitant]
     Indication: PAIN
  3. FENTANYL [Concomitant]
     Indication: ARTHRALGIA
  4. PERCOCET [Concomitant]
     Indication: BREAKTHROUGH PAIN
  5. BENICAR [Concomitant]
     Indication: HYPERTENSION
     Dosage: 40/25MG DAILY
  6. TOPROL XL [Concomitant]
     Indication: HYPERTENSION
     Dosage: DAILY
  7. PRILOSEC [Concomitant]
     Indication: GASTROOESOPHAGEAL REFLUX DISEASE
     Dosage: DAILY
  8. PROZAC [Concomitant]
     Indication: DEPRESSION
     Dosage: DAILY
  9. NEURONTIN [Concomitant]
     Indication: NEUROPATHY PERIPHERAL
     Dosage: DAILY
  10. PHENERGAN [Concomitant]
     Indication: NAUSEA

REACTIONS (1)
  - Injection site pain [Recovered/Resolved]
